FAERS Safety Report 4441041-8 (Version None)
Quarter: 2004Q3

REPORT INFORMATION
  Report Type: 
  Country: None (occurrence: None)
  Receive Date: 20040825
  Receipt Date: 20031029
  Transmission Date: 20050211
  Serious: Yes (Death, Other)
  Sender: FDA-Public Use
  Company Number: 22612 (0)

PATIENT
  Age: 49 Year
  Sex: Male

DRUGS (1)
  1. FLECAINIDE ACETATE [Suspect]
     Indication: VENTRICULAR TACHYCARDIA
     Dosage: ORAL
     Route: 048

REACTIONS (2)
  - DEATH [None]
  - PACING THRESHOLD INCREASED [None]
